FAERS Safety Report 15481112 (Version 1)
Quarter: 2018Q4

REPORT INFORMATION
  Report Type: Spontaneous
  Country: US (occurrence: US)
  Receive Date: 20181010
  Receipt Date: 20181010
  Transmission Date: 20190205
  Serious: No
  Sender: FDA-Public Use
  Company Number: US-SA-2018SA274186

PATIENT
  Age: 20 Year
  Sex: Male

DRUGS (1)
  1. DUPIXENT [Suspect]
     Active Substance: DUPILUMAB
     Indication: SKIN DISORDER
     Dosage: UNK, QOW
     Route: 058
     Dates: start: 201808, end: 201809

REACTIONS (9)
  - Nausea [Unknown]
  - Headache [Unknown]
  - Cough [Unknown]
  - Back pain [Unknown]
  - Chest discomfort [Unknown]
  - Vomiting [Unknown]
  - Emotional disorder [Unknown]
  - Arthralgia [Unknown]
  - Malaise [Unknown]

NARRATIVE: CASE EVENT DATE: 201809
